FAERS Safety Report 7329186-6 (Version None)
Quarter: 2011Q1

REPORT INFORMATION
  Report Type: 
  Country: None (occurrence: None)
  Receive Date: 20110303
  Receipt Date: 20101007
  Transmission Date: 20110831
  Serious: Yes (Hospitalization)
  Sender: FDA-Public Use
  Company Number: A0886485A

PATIENT
  Age: 46 Year
  Sex: Female

DRUGS (3)
  1. AVANDARYL [Suspect]
     Route: 048
  2. AVANDIA [Suspect]
     Dosage: 4MG TWICE PER DAY
     Route: 048
  3. AVANDAMET [Suspect]
     Route: 048

REACTIONS (2)
  - MYOCARDIAL INFARCTION [None]
  - STENT PLACEMENT [None]
